FAERS Safety Report 7541825-3 (Version None)
Quarter: 2011Q2

REPORT INFORMATION
  Report Type: 
  Country: None (occurrence: None)
  Receive Date: 20110613
  Receipt Date: 20110607
  Transmission Date: 20111010
  Serious: Yes (Hospitalization)
  Sender: FDA-Public Use
  Company Number: FR-JNJFOC-20110100504

PATIENT
  Sex: Male

DRUGS (5)
  1. TRANXENE [Concomitant]
     Indication: PROPHYLAXIS
     Route: 065
     Dates: start: 20101214, end: 20101214
  2. EQUANIL [Concomitant]
     Dosage: 400 MG 1 TABLET IN THE MORNING AND 1 IN THE EVENING
     Route: 065
  3. IMODIUM [Suspect]
     Indication: PRODUCT USED FOR UNKNOWN INDICATION
     Route: 048
     Dates: end: 20101214
  4. SECTRAL [Suspect]
     Indication: HYPERTENSION
     Dosage: 200 MG 1 TABLET IN THE MORNING AND 1 IN THE EVENING
     Route: 048
     Dates: end: 20101214
  5. PRAZEPAM [Concomitant]
     Route: 065

REACTIONS (7)
  - BRADYCARDIA [None]
  - HYPERCAPNIA [None]
  - URINARY RETENTION [None]
  - COMA [None]
  - OVERDOSE [None]
  - PARAPARESIS [None]
  - IIIRD NERVE PARALYSIS [None]
